FAERS Safety Report 7238250-1 (Version None)
Quarter: 2011Q1

REPORT INFORMATION
  Report Type: 
  Country: None (occurrence: None)
  Receive Date: 20110121
  Receipt Date: 20110115
  Transmission Date: 20110831
  Serious: Yes (Other)
  Sender: FDA-Public Use
  Company Number: US-PFIZER INC-2011010303

PATIENT
  Sex: Female
  Weight: 76.19 kg

DRUGS (5)
  1. URSODIOL [Concomitant]
     Indication: HEPATITIS
     Dosage: UNK
  2. LYRICA [Suspect]
     Indication: ARTHRITIS
     Dosage: 50 MG, 1X/DAY
     Route: 048
     Dates: start: 20110113
  3. AMBIEN [Concomitant]
     Dosage: UNK
  4. PRAVASTATIN [Concomitant]
     Dosage: UNK
  5. CHANTIX [Concomitant]
     Dosage: UNK

REACTIONS (6)
  - VISION BLURRED [None]
  - INSOMNIA [None]
  - DIZZINESS [None]
  - EUPHORIC MOOD [None]
  - DRUG INTOLERANCE [None]
  - IMPAIRED DRIVING ABILITY [None]
